FAERS Safety Report 9398946 (Version 1)
Quarter: 2013Q3

REPORT INFORMATION
  Report Type: Spontaneous
  Country: US (occurrence: US)
  Receive Date: 20130712
  Receipt Date: 20130712
  Transmission Date: 20140515
  Serious: No
  Sender: FDA-Public Use
  Company Number: US-009507513-1307USA005935

PATIENT
  Age: 66 Year
  Sex: Female

DRUGS (2)
  1. STROMECTOL [Suspect]
     Indication: ACARODERMATITIS
     Dosage: 8 TABLETS, QD, ON AND OFF
     Route: 048
     Dates: start: 201207
  2. ANALGESIC (UNSPECIFIED) [Concomitant]

REACTIONS (3)
  - Acarodermatitis [Not Recovered/Not Resolved]
  - Overdose [Unknown]
  - Off label use [Unknown]
